FAERS Safety Report 4407543-5 (Version None)
Quarter: 2004Q3

REPORT INFORMATION
  Report Type: 
  Country: None (occurrence: None)
  Receive Date: 20040721
  Receipt Date: 20040708
  Transmission Date: 20050211
  Serious: Yes (Hospitalization)
  Sender: FDA-Public Use
  Company Number: JP-JNJFOC-20040702321

PATIENT
  Age: 67 Year
  Sex: Female
  Weight: 35.4 kg

DRUGS (3)
  1. REMICADE [Suspect]
     Indication: RHEUMATOID ARTHRITIS
     Dosage: SEE IMAGE
     Route: 042
     Dates: start: 20040529
  2. REMICADE [Suspect]
     Indication: RHEUMATOID ARTHRITIS
     Dosage: SEE IMAGE
     Route: 042
     Dates: start: 20040629
  3. RHEUMATREX [Concomitant]

REACTIONS (4)
  - ARTHRALGIA [None]
  - C-REACTIVE PROTEIN INCREASED [None]
  - COUGH [None]
  - NASOPHARYNGITIS [None]
